FAERS Safety Report 6861105-9 (Version None)
Quarter: 2010Q3

REPORT INFORMATION
  Report Type: 
  Country: None (occurrence: None)
  Receive Date: 20100720
  Receipt Date: 20100628
  Transmission Date: 20110219
  Serious: Yes (Hospitalization)
  Sender: FDA-Public Use
  Company Number: FR-PURDUE-USA-2010-0045171

PATIENT
  Sex: Male

DRUGS (6)
  1. TRAMADOL HCL [Interacting]
     Indication: PRODUCT USED FOR UNKNOWN INDICATION
     Dosage: UNK
     Dates: start: 20091101
  2. HALOPERIDOL [Suspect]
     Indication: PRODUCT USED FOR UNKNOWN INDICATION
  3. DOTHIEPIN HYDROCHLORIDE [Suspect]
     Indication: DEPRESSION
  4. VALPROATE SODIUM [Suspect]
     Indication: PRODUCT USED FOR UNKNOWN INDICATION
     Dosage: UNK
  5. FLUPHENAZINE DECANOATE [Suspect]
     Indication: PRODUCT USED FOR UNKNOWN INDICATION
  6. TROPATEPINE HYDROCHLORIDE [Suspect]
     Indication: PRODUCT USED FOR UNKNOWN INDICATION

REACTIONS (4)
  - CONVULSION [None]
  - DRUG INTERACTION [None]
  - OVERDOSE [None]
  - PULMONARY EMBOLISM [None]
